FAERS Safety Report 7939459-1 (Version None)
Quarter: 2011Q4

REPORT INFORMATION
  Report Type: 
  Country: None (occurrence: None)
  Receive Date: 20111125
  Receipt Date: 20111117
  Transmission Date: 20120403
  Serious: Yes (Death)
  Sender: FDA-Public Use
  Company Number: GB-ROCHE-GNE323552

PATIENT
  Sex: Female

DRUGS (10)
  1. BENDROFLUMETHIAZIDE [Concomitant]
  2. ARIMIDEX [Concomitant]
  3. MIDAZOLAM [Concomitant]
  4. FOLIC ACID [Concomitant]
  5. DIAMORPHINE [Concomitant]
  6. LUCENTIS [Suspect]
     Indication: PRODUCT USED FOR UNKNOWN INDICATION
     Route: 050
  7. LANSOPRAZOLE [Concomitant]
  8. FERROUS FUMARATE [Concomitant]
  9. HYOSCINE [Concomitant]
  10. CYCLIZINE [Concomitant]

REACTIONS (2)
  - BREAST CANCER [None]
  - METASTASES TO LUNG [None]
